FAERS Safety Report 18277770 (Version 1)
Quarter: 2020Q3

REPORT INFORMATION
  Report Type: Spontaneous
  Country: US (occurrence: US)
  Receive Date: 20200917
  Receipt Date: 20200917
  Transmission Date: 20201103
  Serious: Yes (Other)
  Sender: FDA-Public Use
  Company Number: None

PATIENT
  Age: 15 Year
  Sex: Female
  Weight: 130 kg

DRUGS (1)
  1. KUVAN [Suspect]
     Active Substance: SAPROPTERIN DIHYDROCHLORIDE
     Indication: PHENYLKETONURIA
     Route: 048
     Dates: start: 20070716

REACTIONS (6)
  - Drug ineffective [None]
  - Gastrooesophageal reflux disease [None]
  - Eating disorder [None]
  - Hiatus hernia [None]
  - Dyspepsia [None]
  - Gastrointestinal pain [None]

NARRATIVE: CASE EVENT DATE: 20200802
